FAERS Safety Report 6710467-1 (Version None)
Quarter: 2010Q2

REPORT INFORMATION
  Report Type: 
  Country: None (occurrence: None)
  Receive Date: 20100504
  Receipt Date: 20100120
  Transmission Date: 20101027
  Serious: Yes (Other)
  Sender: FDA-Public Use
  Company Number: JP-B.I. PHARMACEUTICALS,INC./RIDGEFIELD-2010-BP-00713NB

PATIENT
  Age: 82 Year
  Sex: Male

DRUGS (1)
  1. MICARDIS [Suspect]
     Dosage: 40 MG
     Route: 048

REACTIONS (2)
  - HYPOTENSION [None]
  - LOSS OF CONSCIOUSNESS [None]
